FAERS Safety Report 17533459 (Version 1)
Quarter: 2020Q1

REPORT INFORMATION
  Report Type: Spontaneous
  Country: US (occurrence: US)
  Receive Date: 20200304
  Receipt Date: 20200304
  Transmission Date: 20200409
  Serious: No
  Sender: FDA-Public Use
  Company Number: None

PATIENT
  Age: 65 Year
  Sex: Female

DRUGS (3)
  1. CALCIUM CIT/TA VIT D [Concomitant]
  2. PRILOSEC OTC [Concomitant]
     Active Substance: OMEPRAZOLE MAGNESIUM
  3. OCALIVA [Suspect]
     Active Substance: OBETICHOLIC ACID
     Indication: PRIMARY BILIARY CHOLANGITIS
     Dosage: ?          OTHER FREQUENCY:MON,WED,FRI;?
     Route: 048
     Dates: start: 20190528

REACTIONS (2)
  - Gastroenteritis viral [None]
  - Therapy cessation [None]

NARRATIVE: CASE EVENT DATE: 20200227
